FAERS Safety Report 14289025 (Version 2)
Quarter: 2018Q3

REPORT INFORMATION
  Report Type: Report from Study
  Country: GB (occurrence: GB)
  Receive Date: 20171214
  Receipt Date: 20180927
  Transmission Date: 20181010
  Serious: Yes (Death, Hospitalization, Other)
  Sender: FDA-Public Use
  Company Number: GB-TEVA-2017-GB-834792

PATIENT
  Sex: Male

DRUGS (3)
  1. PIRFENIDONE. [Suspect]
     Active Substance: PIRFENIDONE
     Dosage: 801 MILLIGRAM DAILY;
     Route: 048
     Dates: start: 20130211
  2. PIRFENIDONE. [Suspect]
     Active Substance: PIRFENIDONE
     Indication: IDIOPATHIC PULMONARY FIBROSIS
     Dosage: 801 MILLIGRAM DAILY;
     Route: 048
     Dates: start: 20130903
  3. AZITHROMYCIN ANHYDROUS. [Suspect]
     Active Substance: AZITHROMYCIN ANHYDROUS
     Indication: OSTEOMYELITIS
     Route: 065

REACTIONS (58)
  - Haemoptysis [Unknown]
  - Depressed mood [Unknown]
  - Pneumonia [Unknown]
  - Oxygen saturation decreased [Unknown]
  - Insomnia [Not Recovered/Not Resolved]
  - Gastrooesophageal reflux disease [Not Recovered/Not Resolved]
  - Anxiety [Unknown]
  - Abdominal discomfort [Unknown]
  - Tremor [Unknown]
  - Viral infection [Unknown]
  - Hypotension [Unknown]
  - Malaise [Unknown]
  - Musculoskeletal stiffness [Unknown]
  - Erythema [Unknown]
  - Death [Fatal]
  - Chest pain [Recovering/Resolving]
  - Cataract [Unknown]
  - Seborrhoea [Unknown]
  - Frequent bowel movements [Not Recovered/Not Resolved]
  - Gastrooesophageal reflux disease [Unknown]
  - Pruritus [Recovered/Resolved]
  - Total lung capacity decreased [Unknown]
  - Jaw cyst [Not Recovered/Not Resolved]
  - Nasopharyngitis [Not Recovered/Not Resolved]
  - Alopecia [Recovered/Resolved]
  - Pulmonary function test decreased [Unknown]
  - General physical health deterioration [Unknown]
  - Increased upper airway secretion [Unknown]
  - Productive cough [Unknown]
  - Fatigue [Unknown]
  - Lower respiratory tract infection [Unknown]
  - Chest pain [Unknown]
  - Tinnitus [Recovered/Resolved]
  - Tooth injury [Unknown]
  - Weight decreased [Unknown]
  - Hiatus hernia [Unknown]
  - Cough [Unknown]
  - Pruritus [Unknown]
  - Pulmonary oedema [Unknown]
  - Vertigo [Recovered/Resolved]
  - Headache [Unknown]
  - Sunburn [Unknown]
  - Osteomyelitis [Unknown]
  - Upper-airway cough syndrome [Unknown]
  - Condition aggravated [Unknown]
  - Drug effect decreased [Unknown]
  - Lethargy [Unknown]
  - Abdominal pain upper [Not Recovered/Not Resolved]
  - Dyspnoea [Not Recovered/Not Resolved]
  - Gastrointestinal disorder [Unknown]
  - Lower respiratory tract infection [Not Recovered/Not Resolved]
  - Skin irritation [Unknown]
  - Tearfulness [Unknown]
  - Osteomyelitis [Not Recovered/Not Resolved]
  - Asthenia [Unknown]
  - Heart rate increased [Unknown]
  - Seasonal allergy [Unknown]
  - Rash [Unknown]

NARRATIVE: CASE EVENT DATE: 201501
